FAERS Safety Report 5090768-6 (Version None)
Quarter: 2006Q3

REPORT INFORMATION
  Report Type: 
  Country: None (occurrence: None)
  Receive Date: 20060823
  Receipt Date: 20060814
  Transmission Date: 20061208
  Serious: Yes (Hospitalization)
  Sender: FDA-Public Use
  Company Number: GXKR2006TW04739

PATIENT
  Age: 69 Year
  Sex: Male

DRUGS (3)
  1. CEFAZOLIN [Suspect]
     Indication: URINARY TRACT INFECTION
     Dosage: 1 G, Q8H, INTRAVENOUS
     Route: 042
  2. GENTAMICIN [Suspect]
     Indication: URINARY TRACT INFECTION
     Dosage: 80 MG, Q12H, INTRAVENOUS
     Route: 042
  3. PREDNISOLONE [Suspect]
     Indication: CHRONIC OBSTRUCTIVE PULMONARY DISEASE
     Dosage: 10 MG, BID

REACTIONS (6)
  - GASTROINTESTINAL INFECTION [None]
  - KLEBSIELLA INFECTION [None]
  - MENINGITIS ENTEROCOCCAL [None]
  - PYURIA [None]
  - THROMBOCYTOPENIA [None]
  - URINARY TRACT INFECTION BACTERIAL [None]
